FAERS Safety Report 7751761-5 (Version None)
Quarter: 2011Q3

REPORT INFORMATION
  Report Type: 
  Country: None (occurrence: None)
  Receive Date: 20110915
  Receipt Date: 20110905
  Transmission Date: 20111222
  Serious: Yes (Hospitalization)
  Sender: FDA-Public Use
  Company Number: BH-RANBAXY-2011RR-47453

PATIENT
  Age: 24 Year
  Sex: Male

DRUGS (1)
  1. FLUOXETINE [Suspect]
     Indication: PREMATURE EJACULATION
     Dosage: 20 MG, UNK
     Route: 048

REACTIONS (1)
  - OESOPHAGITIS [None]
